FAERS Safety Report 14625564 (Version 5)
Quarter: 2019Q3

REPORT INFORMATION
  Report Type: Spontaneous
  Country: US (occurrence: US)
  Receive Date: 20180312
  Receipt Date: 20190724
  Transmission Date: 20191004
  Serious: No
  Sender: FDA-Public Use
  Company Number: US-PFIZER INC-2018102675

PATIENT
  Age: 72 Year
  Sex: Female

DRUGS (3)
  1. LYRICA [Suspect]
     Active Substance: PREGABALIN
     Indication: NEUROPATHY PERIPHERAL
     Dosage: 200 MG, 1X/DAY [NIGHTLY AT BEDTIME]
     Route: 048
  2. LYRICA [Suspect]
     Active Substance: PREGABALIN
     Dosage: 200 MG, 1X/DAY(NIGHTLY AT BEDTIME)
     Route: 048
  3. PRISTIQ EXTENDED-RELEASE [Concomitant]
     Active Substance: DESVENLAFAXINE SUCCINATE
     Dosage: UNK
     Dates: end: 201802

REACTIONS (5)
  - Malaise [Unknown]
  - Pain [Unknown]
  - Limb discomfort [Unknown]
  - Pain in extremity [Unknown]
  - Insomnia [Unknown]
